FAERS Safety Report 12656124 (Version 1)
Quarter: 2016Q3

REPORT INFORMATION
  Report Type: Spontaneous
  Country: US (occurrence: US)
  Receive Date: 20160816
  Receipt Date: 20160816
  Transmission Date: 20161109
  Serious: Yes (Hospitalization)
  Sender: FDA-Public Use
  Company Number: US-CORDEN PHARMA LATINA S.P.A.-US-2016COR000202

PATIENT
  Age: 73 Year
  Sex: Male

DRUGS (4)
  1. CISPLATIN. [Suspect]
     Active Substance: CISPLATIN
     Indication: EXTRAGONADAL PRIMARY GERM CELL TUMOUR
     Dosage: (20 MG/M2)
     Route: 065
  2. VEPESID [Suspect]
     Active Substance: ETOPOSIDE
     Indication: EXTRAGONADAL PRIMARY GERM CELL TUMOUR
     Dosage: (80 MG/M2)
     Route: 065
  3. GRANULOCYTE COLONY STIMULATING FACTOR [Suspect]
     Active Substance: GRANULOCYTE COLONY-STIMULATING FACTOR NOS
     Indication: PROPHYLAXIS
     Dosage: UNK, STARTING ON DAY 7
  4. IFOSFAMIDE W/MESNA [Suspect]
     Active Substance: IFOSFAMIDE\MESNA
     Indication: EXTRAGONADAL PRIMARY GERM CELL TUMOUR
     Dosage: 1200 MG/M2 (WITH MESNA 120 MG/M2 )
     Route: 065

REACTIONS (4)
  - Haemothorax [Unknown]
  - Sepsis [Unknown]
  - Pancytopenia [Unknown]
  - Multiple organ dysfunction syndrome [Unknown]
